FAERS Safety Report 8582601-2 (Version None)
Quarter: 2012Q3

REPORT INFORMATION
  Report Type: 
  Country: None (occurrence: None)
  Receive Date: 20120809
  Receipt Date: 19881222
  Transmission Date: 20120928
  Serious: Yes (Death)
  Sender: FDA-Public Use
  Company Number: US-ROCHE-1096903

PATIENT
  Sex: Male

DRUGS (8)
  1. LIDOCAINE [Concomitant]
     Route: 042
  2. PRONESTYL [Concomitant]
  3. HEPARIN [Concomitant]
     Route: 042
  4. ACTIVASE [Suspect]
     Indication: ACUTE MYOCARDIAL INFARCTION
  5. ATROPINE [Concomitant]
  6. BRETYLIUM [Concomitant]
  7. DOPAMINE HCL [Concomitant]
     Route: 042
  8. MORPHINE [Concomitant]
     Route: 042

REACTIONS (1)
  - CARDIAC FAILURE [None]
